FAERS Safety Report 9746526 (Version 1)
Quarter: 2013Q4

REPORT INFORMATION
  Report Type: Spontaneous
  Country: US (occurrence: None)
  Receive Date: 20131209
  Receipt Date: 20131209
  Transmission Date: 20140711
  Serious: Yes (Hospitalization)
  Sender: FDA-Public Use
  Company Number: None

PATIENT
  Age: 26 Year
  Sex: Male

DRUGS (1)
  1. PROAIR HFA INHALER [Suspect]
     Indication: ASTHMA
     Dosage: 2 PUFFS, EVERY 6 HOURS PRN BY INHALATION
     Route: 055
     Dates: start: 20131001

REACTIONS (3)
  - Device malfunction [None]
  - Asthma [None]
  - Incorrect dose administered by device [None]
